FAERS Safety Report 4721459-6 (Version None)
Quarter: 2005Q3

REPORT INFORMATION
  Report Type: 
  Country: None (occurrence: None)
  Receive Date: 20050721
  Receipt Date: 20040922
  Transmission Date: 20060218
  Serious: No
  Sender: FDA-Public Use
  Company Number: US-BRISTOL-MYERS SQUIBB COMPANY-12709028

PATIENT
  Age: 64 Year
  Sex: Female
  Weight: 82 kg

DRUGS (6)
  1. COUMADIN [Suspect]
     Indication: TRANSIENT ISCHAEMIC ATTACK
     Dosage: START APPROX. 9 MONTHS AGO; ON 2MG + 2,5MG DAILY ON ALTERNATE DAYS
     Route: 048
     Dates: start: 20040101
  2. SUDAFED 12 HOUR [Suspect]
     Indication: MULTIPLE ALLERGIES
     Dosage: 1-2 TIMES DAILY-STARTED APPROX. 1 MONTH AGO
     Dates: start: 20040801
  3. ZETIA [Concomitant]
     Dosage: DAILY
  4. NORVASC [Concomitant]
     Dosage: DAILY
  5. ENALAPRIL [Concomitant]
     Dosage: DAILY
  6. ATENOLOL [Concomitant]
     Dosage: DAILY

REACTIONS (1)
  - PROTHROMBIN TIME ABNORMAL [None]
